FAERS Safety Report 10438830 (Version 1)
Quarter: 2014Q3

REPORT INFORMATION
  Report Type: Spontaneous
  Country: US (occurrence: US)
  Receive Date: 20140908
  Receipt Date: 20140908
  Transmission Date: 20150326
  Serious: No
  Sender: FDA-Public Use
  Company Number: US-BRISTOL-MYERS SQUIBB COMPANY-21172853

PATIENT
  Age: 21 Year
  Sex: Female
  Weight: 87.07 kg

DRUGS (4)
  1. PAXIL [Concomitant]
     Active Substance: PAROXETINE HYDROCHLORIDE
  2. NORGESTIMATE + ETHINYLESTRADIOL [Concomitant]
     Dates: start: 201310
  3. ABILIFY [Suspect]
     Active Substance: ARIPIPRAZOLE
     Dosage: APR14,TABS
  4. ADDERALL [Concomitant]
     Active Substance: AMPHETAMINE ASPARTATE\AMPHETAMINE SULFATE\DEXTROAMPHETAMINE SACCHARATE\DEXTROAMPHETAMINE SULFATE

REACTIONS (1)
  - Weight increased [Unknown]
